FAERS Safety Report 8555362-0 (Version None)
Quarter: 2012Q3

REPORT INFORMATION
  Report Type: 
  Country: None (occurrence: None)
  Receive Date: 20120731
  Receipt Date: 20110526
  Transmission Date: 20120928
  Serious: No
  Sender: FDA-Public Use
  Company Number: US-ASTRAZENECA-2011SE32979

PATIENT
  Age: 40 Year
  Sex: Male
  Weight: 104.3 kg

DRUGS (19)
  1. SEROQUEL XR [Suspect]
     Indication: PARANOIA
     Route: 048
  2. LITHIUM CARBONATE [Concomitant]
     Indication: BIPOLAR DISORDER
  3. PROPRANOLOL [Concomitant]
     Indication: TREMOR
  4. PROPRANOLOL [Concomitant]
     Indication: DEPRESSION
  5. TOPAMAX [Concomitant]
     Indication: DEPRESSION
  6. LITHIUM CARBONATE [Concomitant]
     Indication: SCHIZOPHRENIA
  7. VALIUM [Concomitant]
     Indication: ANXIETY
  8. VALIUM [Concomitant]
     Indication: DEPRESSION
  9. TOPAMAX [Concomitant]
     Indication: WEIGHT DECREASED
  10. LITHIUM CARBONATE [Concomitant]
     Indication: DEPRESSION
  11. PROPRANOLOL [Concomitant]
     Indication: SCHIZOPHRENIA
  12. TOPAMAX [Concomitant]
     Indication: BIPOLAR DISORDER
  13. TESTOSTERONE INJECTION [Concomitant]
  14. SEROQUEL XR [Suspect]
     Indication: SCHIZOPHRENIA
     Route: 048
  15. PROPRANOLOL [Concomitant]
     Indication: BIPOLAR DISORDER
  16. TOPAMAX [Concomitant]
     Indication: SCHIZOPHRENIA
  17. VALIUM [Concomitant]
     Indication: BIPOLAR DISORDER
  18. SEROQUEL XR [Suspect]
     Indication: BIPOLAR DISORDER
     Route: 048
  19. VALIUM [Concomitant]
     Indication: SCHIZOPHRENIA

REACTIONS (4)
  - PARANOIA [None]
  - DRUG DOSE OMISSION [None]
  - SCHIZOPHRENIA [None]
  - MANIA [None]
